FAERS Safety Report 6201810-0 (Version None)
Quarter: 2009Q2

REPORT INFORMATION
  Report Type: 
  Country: None (occurrence: None)
  Receive Date: 20090520
  Receipt Date: 20090507
  Transmission Date: 20091009
  Serious: Yes (Death)
  Sender: FDA-Public Use
  Company Number: 2009S1008093

PATIENT
  Sex: Male

DRUGS (1)
  1. FENTANYL TRANSDERMAL SYSTEM [Suspect]
     Dosage: 75 US; EVERY HOUR; TRANSDERMAL
     Route: 062
     Dates: end: 20080503

REACTIONS (2)
  - DRUG TOXICITY [None]
  - OVERDOSE [None]
